FAERS Safety Report 7207111-6 (Version None)
Quarter: 2010Q4

REPORT INFORMATION
  Report Type: 
  Country: None (occurrence: None)
  Receive Date: 20101217
  Receipt Date: 20101202
  Transmission Date: 20110411
  Serious: Yes (Hospitalization)
  Sender: FDA-Public Use
  Company Number: 2009003567

PATIENT
  Age: 56 Year
  Sex: Male
  Weight: 59 kg

DRUGS (16)
  1. ERLOTINIB HYDROCHLORIDE [Suspect]
     Indication: NON-SMALL CELL LUNG CANCER
     Dosage: (150 MG, 1 IN 1 D), ORAL
     Route: 048
     Dates: start: 20091005, end: 20091102
  2. CP-751, 871 [Suspect]
     Indication: NON-SMALL CELL LUNG CANCER
     Dosage: (1180 MG, 1 IN 3 WK), INTRAVENOUS
     Route: 042
     Dates: start: 20091005, end: 20091026
  3. PACLITAXEL [Suspect]
     Indication: NON-SMALL CELL LUNG CANCER
     Dosage: (330 MG, 1 IN 3 WK), INTRAVENOUS
     Route: 042
     Dates: start: 20091005, end: 20091026
  4. CARBOPLATIN [Suspect]
     Indication: NON-SMALL CELL LUNG CANCER
     Dosage: (30 MG, 1 IN 3 WK), INTRAVENOUS
     Route: 042
     Dates: start: 20091005, end: 20091026
  5. OMEPRAZOLE [Concomitant]
  6. ACETAMINOPHEN [Concomitant]
  7. IBUPROFEN [Concomitant]
  8. DIAZEPAM [Concomitant]
  9. SPIRIVA [Concomitant]
  10. DEFLAZACORT (DEFLAZACORT) [Concomitant]
  11. MYCOSTATIN [Concomitant]
  12. LOPERAMIDE [Concomitant]
  13. MORPHINE SULFATE [Concomitant]
  14. HYDROCORTONE [Concomitant]
  15. IRON (IRON) [Concomitant]
  16. ERYTHROPOIETAN (ERYTHROPOIETIN) [Concomitant]

REACTIONS (12)
  - ALANINE AMINOTRANSFERASE INCREASED [None]
  - BLOOD AMYLASE INCREASED [None]
  - BLOOD POTASSIUM INCREASED [None]
  - BLOOD SODIUM DECREASED [None]
  - FATIGUE [None]
  - HAEMOGLOBIN DECREASED [None]
  - MUCOSAL INFLAMMATION [None]
  - PERFORMANCE STATUS DECREASED [None]
  - PLATELET COUNT DECREASED [None]
  - PLEURAL EFFUSION [None]
  - RENAL FAILURE ACUTE [None]
  - SKIN TOXICITY [None]
